FAERS Safety Report 6999120-7 (Version None)
Quarter: 2010Q3

REPORT INFORMATION
  Report Type: 
  Country: None (occurrence: None)
  Receive Date: 20100920
  Receipt Date: 20100222
  Transmission Date: 20110219
  Serious: Yes (Other)
  Sender: FDA-Public Use
  Company Number: US-ASTRAZENECA-2010SE07556

PATIENT
  Age: 31 Year
  Sex: Female

DRUGS (2)
  1. SEROQUEL [Suspect]
     Route: 048
  2. KLONOPIN [Suspect]
     Route: 065

REACTIONS (4)
  - GENERAL PHYSICAL CONDITION ABNORMAL [None]
  - INCREASED APPETITE [None]
  - SUICIDAL BEHAVIOUR [None]
  - WEIGHT INCREASED [None]
